FAERS Safety Report 21278578 (Version 2)
Quarter: 2022Q4

REPORT INFORMATION
  Report Type: Report from Study
  Country: US (occurrence: US)
  Receive Date: 20220901
  Receipt Date: 20221006
  Transmission Date: 20230112
  Serious: No
  Sender: FDA-Public Use
  Company Number: US-ACADIA PHARMACEUTICALS INC.-ACA-2022-PIM-002915

PATIENT
  Sex: Male

DRUGS (9)
  1. NUPLAZID [Suspect]
     Active Substance: PIMAVANSERIN TARTRATE
     Indication: Parkinson^s disease psychosis
     Dosage: UNK
     Route: 065
     Dates: start: 20220628
  2. CARBIDOPA\LEVODOPA [Concomitant]
     Active Substance: CARBIDOPA\LEVODOPA
  3. QUETIAPINE [Concomitant]
     Active Substance: QUETIAPINE
  4. ROPINIROLE [Concomitant]
     Active Substance: ROPINIROLE
  5. DONEPEZIL [Concomitant]
     Active Substance: DONEPEZIL
  6. GABAPENTIN [Concomitant]
     Active Substance: GABAPENTIN
  7. CLONIDINE [Concomitant]
     Active Substance: CLONIDINE
  8. LEXAPRO [Concomitant]
     Active Substance: ESCITALOPRAM OXALATE
  9. LIPITOR [Concomitant]
     Active Substance: ATORVASTATIN CALCIUM

REACTIONS (2)
  - Heart rate increased [Not Recovered/Not Resolved]
  - Confusional state [Unknown]
